FAERS Safety Report 7543342-3 (Version None)
Quarter: 2011Q2

REPORT INFORMATION
  Report Type: 
  Country: None (occurrence: None)
  Receive Date: 20110524
  Receipt Date: 20110203
  Transmission Date: 20111010
  Serious: No
  Sender: FDA-Public Use
  Company Number: 023818

PATIENT
  Sex: Female
  Weight: 109 kg

DRUGS (4)
  1. CIMZIA [Suspect]
  2. ALLEGRA [Concomitant]
  3. XOPENEX [Concomitant]
  4. CIMZIA [Suspect]
     Indication: CROHN'S DISEASE
     Dosage: (400 MG 1X/4 WEEKS SUBCUTANEOUS) ; (SUBCUTANEOUS)
     Route: 058
     Dates: start: 20090601

REACTIONS (4)
  - PAIN [None]
  - RASH PRURITIC [None]
  - ERYTHEMA [None]
  - SWELLING [None]
